FAERS Safety Report 6698938-8 (Version None)
Quarter: 2010Q2

REPORT INFORMATION
  Report Type: 
  Country: None (occurrence: None)
  Receive Date: 20100427
  Receipt Date: 20100421
  Transmission Date: 20101027
  Serious: Yes (Other)
  Sender: FDA-Public Use
  Company Number: A0838020A

PATIENT
  Age: 29 Year
  Sex: Female

DRUGS (3)
  1. LAMICTAL [Suspect]
     Indication: BIPOLAR DISORDER
     Dosage: 100MG PER DAY
     Route: 048
     Dates: start: 20091130
  2. BIRTH CONTROL [Suspect]
  3. ABILIFY [Concomitant]

REACTIONS (7)
  - ABDOMINAL PAIN UPPER [None]
  - DIZZINESS [None]
  - DRUG INTERACTION [None]
  - HEADACHE [None]
  - INSOMNIA [None]
  - MANIA [None]
  - POLLAKIURIA [None]
